FAERS Safety Report 6095748-X (Version None)
Quarter: 2009Q1

REPORT INFORMATION
  Report Type: 
  Country: None (occurrence: None)
  Receive Date: 20090227
  Receipt Date: 20080609
  Transmission Date: 20090719
  Serious: No
  Sender: FDA-Public Use
  Company Number: A0731966A

PATIENT
  Age: 56 Year
  Sex: Female

DRUGS (6)
  1. LAMICTAL [Suspect]
     Dosage: 25MG PER DAY
     Route: 048
     Dates: start: 20080528
  2. MULTI-VITAMINS [Concomitant]
  3. ASCORBIC ACID [Concomitant]
  4. VITAMIN E [Concomitant]
  5. VITAMIN D3 [Concomitant]
  6. NORVASC [Concomitant]

REACTIONS (8)
  - ARTHRALGIA [None]
  - BLOOD PRESSURE INCREASED [None]
  - DYSPEPSIA [None]
  - HEADACHE [None]
  - MUSCLE TIGHTNESS [None]
  - MUSCLE TWITCHING [None]
  - NECK PAIN [None]
  - PARAESTHESIA [None]
